FAERS Safety Report 7921140-6 (Version None)
Quarter: 2011Q4

REPORT INFORMATION
  Report Type: 
  Country: None (occurrence: None)
  Receive Date: 20111117
  Receipt Date: 20111107
  Transmission Date: 20120403
  Serious: Yes (Other)
  Sender: FDA-Public Use
  Company Number: PHEH2011US008802

PATIENT
  Sex: Male

DRUGS (17)
  1. HYDRALAZINE HCL [Suspect]
     Dosage: 10 MG, TID
  2. PLAVIX [Suspect]
     Dosage: UNK
  3. HYDROCODONE BITARTRATE [Concomitant]
     Dosage: UNK
  4. DIOVAN [Suspect]
     Dosage: 160 MG DAILY
  5. DIAZEPAM [Suspect]
     Dosage: UNK
  6. ZETIA [Suspect]
     Dosage: 1 DF, QD
  7. DIOVAN [Suspect]
     Dosage: 160 MG DAILY
  8. POTASSIUM [Concomitant]
     Dosage: 10 MEQ, BID
  9. ASPIRIN [Concomitant]
     Dosage: 325 MG, QD
  10. MECLIZINE [Concomitant]
     Dosage: 25 MG, PRN
  11. DIOVAN [Suspect]
     Dosage: 320 MG DAILY
  12. METFORMIN HCL [Suspect]
     Indication: DIABETES MELLITUS
     Dosage: 500 MG, BID
  13. FISH OIL [Concomitant]
     Dosage: 1200 MG, UNK
  14. GLIMEPIRIDE [Suspect]
     Dosage: UNK
  15. LASIX [Concomitant]
     Dosage: UNK UKN, UNK
  16. SERZONE [Suspect]
     Dosage: 150 MG, BID
  17. TOPROL-XL [Concomitant]
     Dosage: 100 MG, BID

REACTIONS (8)
  - HYPOTENSION [None]
  - DIARRHOEA [None]
  - ASTHENIA [None]
  - BLOOD GLUCOSE DECREASED [None]
  - MALAISE [None]
  - DIZZINESS [None]
  - DYSPHONIA [None]
  - COUGH [None]
